FAERS Safety Report 8252998-1 (Version None)
Quarter: 2012Q2

REPORT INFORMATION
  Report Type: 
  Country: None (occurrence: None)
  Receive Date: 20120402
  Receipt Date: 20120329
  Transmission Date: 20120825
  Serious: Yes (Death)
  Sender: FDA-Public Use
  Company Number: ZA-MERCK-1202ZAF00037

PATIENT
  Age: 63 Year
  Sex: Male

DRUGS (1)
  1. CANCIDAS [Suspect]
     Indication: PROPHYLAXIS
     Route: 065

REACTIONS (4)
  - PLEURAL EFFUSION [None]
  - DEATH [None]
  - OFF LABEL USE [None]
  - PERICARDIAL HAEMORRHAGE [None]
